FAERS Safety Report 4274277-X (Version None)
Quarter: 2004Q1

REPORT INFORMATION
  Report Type: 
  Country: None (occurrence: None)
  Receive Date: 20040115
  Receipt Date: 20040107
  Transmission Date: 20041129
  Serious: Yes (Death, Disabling)
  Sender: FDA-Public Use
  Company Number: 163-20785-03110247(1)

PATIENT
  Age: 85 Year
  Sex: Male

DRUGS (2)
  1. THALOMID [Suspect]
     Indication: MULTIPLE MYELOMA
     Dosage: 50 MG, DAILY, ORAL; 100 MG, DAILY, ORAL
     Route: 048
     Dates: start: 20031016, end: 20030101
  2. THALOMID [Suspect]
     Indication: MULTIPLE MYELOMA
     Dosage: 50 MG, DAILY, ORAL; 100 MG, DAILY, ORAL
     Route: 048
     Dates: start: 20031009, end: 20031015

REACTIONS (5)
  - DIFFICULTY IN WALKING [None]
  - DYSSTASIA [None]
  - GENERALISED OEDEMA [None]
  - IMMOBILE [None]
  - RESPIRATORY FAILURE [None]
